FAERS Safety Report 24667972 (Version 1)
Quarter: 2024Q4

REPORT INFORMATION
  Report Type: Spontaneous
  Country: BR (occurrence: BR)
  Receive Date: 20241127
  Receipt Date: 20241127
  Transmission Date: 20250114
  Serious: Yes (Other)
  Sender: ROCHE
  Company Number: BR-002147023-NVSC2024BR188459

PATIENT
  Age: 57 Year
  Sex: Female

DRUGS (2)
  1. XOLAIR [Suspect]
     Active Substance: OMALIZUMAB
     Indication: Chronic spontaneous urticaria
     Dosage: UNK
     Route: 065
  2. QUADRUPLE [Concomitant]
     Indication: Product used for unknown indication
     Dosage: UNK (DROPS)
     Route: 065

REACTIONS (4)
  - Angioedema [Unknown]
  - Dysphonia [Unknown]
  - Pruritus [Unknown]
  - Urticaria [Unknown]
